FAERS Safety Report 9531089 (Version 1)
Quarter: 2013Q3

REPORT INFORMATION
  Report Type: Spontaneous
  Country: US (occurrence: US)
  Receive Date: 20130918
  Receipt Date: 20130918
  Transmission Date: 20140515
  Serious: No
  Sender: FDA-Public Use
  Company Number: US-BAYER-2013-112605

PATIENT
  Age: 86 Week
  Sex: Female
  Weight: 62 kg

DRUGS (10)
  1. ALEVE TABLET [Suspect]
     Indication: ARTHRITIS
     Dosage: 1 DF, PRN
     Route: 048
     Dates: start: 2013
  2. CENTRUM SILVER [Concomitant]
  3. BAYER ASPIRIN REGIMEN ADULT LOW STRENGTH [Concomitant]
  4. DOCUSATE SODIUM [Concomitant]
  5. CITALOPRAM [Concomitant]
  6. PEPCID [Concomitant]
  7. CLOPIDOGREL [Concomitant]
  8. LISINOPRIL [Concomitant]
  9. METOPROLOL TARTRATE [Concomitant]
  10. SIMVASTATIN [Concomitant]

REACTIONS (1)
  - Drug ineffective [None]
